FAERS Safety Report 8802990 (Version 1)
Quarter: 2012Q4

REPORT INFORMATION
  Report Type: 
  Country: US (occurrence: US)
  Receive Date: 20120924
  Receipt Date: 20120924
  Transmission Date: 20130627
  Serious: Yes (Hospitalization, Disabling)
  Sender: FDA-Public Use
  Company Number: US-PFIZER INC-2012231769

PATIENT
  Age: 42 Year
  Sex: Female
  Weight: 61.2 kg

DRUGS (6)
  1. PREMARIN [Suspect]
     Indication: HORMONE REPLACEMENT THERAPY
     Dosage: UNK, daily
     Route: 048
     Dates: start: 1994, end: 2012
  2. LYRICA [Suspect]
     Indication: FIBROMYALGIA
     Dosage: 50 mg, 2x/day
     Route: 048
     Dates: start: 2008, end: 2012
  3. TRAMADOL [Concomitant]
     Indication: ARTHRITIS
     Dosage: UNK
  4. LIDOCAINE [Concomitant]
     Indication: ARTHRITIS
     Dosage: UNK
  5. MIRAPEX [Concomitant]
     Indication: MUSCULOSKELETAL DISORDER
     Dosage: 0.25 mg, daily
     Route: 048
  6. SINEMET [Concomitant]
     Indication: PARKINSON^S DISEASE
     Dosage: 25-100 mg, daily
     Route: 048

REACTIONS (2)
  - Complex regional pain syndrome [Unknown]
  - Hepatic enzyme increased [Recovered/Resolved]
